FAERS Safety Report 21818146 (Version 1)
Quarter: 2023Q1

REPORT INFORMATION
  Report Type: Spontaneous
  Country: US (occurrence: US)
  Receive Date: 20230104
  Receipt Date: 20230104
  Transmission Date: 20230418
  Serious: Yes (Other)
  Sender: FDA-Public Use
  Company Number: US-COOPERSURGICAL, INC.-US-2021CPS003837

PATIENT
  Age: 24 Year
  Sex: Female
  Weight: 71.655 kg

DRUGS (2)
  1. PARAGARD T 380A [Suspect]
     Active Substance: COPPER
     Indication: Contraception
     Dosage: UNK
     Route: 015
     Dates: start: 20181017, end: 20211210
  2. CLINDAMYCIN [Concomitant]
     Active Substance: CLINDAMYCIN
     Indication: Acne
     Dosage: UNK
     Route: 065

REACTIONS (7)
  - Complication of device removal [Recovered/Resolved]
  - Procedural haemorrhage [Recovered/Resolved]
  - Device material issue [Recovered/Resolved]
  - Device dislocation [Recovered/Resolved]
  - Vulvovaginitis trichomonal [Recovered/Resolved]
  - Vaginitis chlamydial [Recovered/Resolved]
  - Vulvovaginitis gonococcal [Recovered/Resolved]

NARRATIVE: CASE EVENT DATE: 20211203
